FAERS Safety Report 24866546 (Version 1)
Quarter: 2025Q1

REPORT INFORMATION
  Report Type: Spontaneous
  Country: US (occurrence: US)
  Receive Date: 20250121
  Receipt Date: 20250121
  Transmission Date: 20250409
  Serious: Yes (Death, Other)
  Sender: AMGEN
  Company Number: US-AMGEN-USASP2025009100

PATIENT
  Age: 7 Year
  Sex: Female

DRUGS (4)
  1. ROMIPLOSTIM [Suspect]
     Active Substance: ROMIPLOSTIM
     Indication: Thrombocytopenia
     Dosage: 3 MICROGRAM/KILOGRAM, QWK
     Route: 058
  2. ROMIPLOSTIM [Suspect]
     Active Substance: ROMIPLOSTIM
     Indication: Thrombotic microangiopathy
     Dosage: 3 MICROGRAM/KILOGRAM, QWK
     Route: 058
  3. VALACYCLOVIR [Concomitant]
     Active Substance: VALACYCLOVIR HYDROCHLORIDE
  4. DEFIBROTIDE [Concomitant]
     Active Substance: DEFIBROTIDE (BOVINE)

REACTIONS (4)
  - Thrombocytopenia [Unknown]
  - Death [Fatal]
  - Thrombotic microangiopathy [Unknown]
  - Off label use [Unknown]
